FAERS Safety Report 8159701-4 (Version None)
Quarter: 2012Q1

REPORT INFORMATION
  Report Type: 
  Country: None (occurrence: None)
  Receive Date: 20120223
  Receipt Date: 20120209
  Transmission Date: 20120608
  Serious: Yes (Hospitalization)
  Sender: FDA-Public Use
  Company Number: JP-WATSON-2012-02773

PATIENT
  Age: 84 Year
  Sex: Female

DRUGS (2)
  1. RISPERIDONE [Suspect]
     Indication: DELUSION OF REFERENCE
     Dosage: 1 MG DAILY X1 WEEK
     Route: 065
  2. RISPERIDONE [Suspect]
     Indication: DELIRIUM
     Dosage: 2 MG DAILY AFTER COMPLETION OF 1 WEEK OF 1 MG DAILY
     Route: 065

REACTIONS (4)
  - RESPIRATORY DYSKINESIA [None]
  - GAIT DISTURBANCE [None]
  - DYSKINESIA [None]
  - WITHDRAWAL SYNDROME [None]
